FAERS Safety Report 8960524 (Version 1)
Quarter: 2012Q4

REPORT INFORMATION
  Report Type: Spontaneous
  Country: DE (occurrence: None)
  Receive Date: 20121203
  Receipt Date: 20121203
  Transmission Date: 20130627
  Serious: Yes (Hospitalization, Disabling)
  Sender: FDA-Public Use
  Company Number: TPA2012A09253

PATIENT
  Age: 38 Year
  Sex: Male

DRUGS (1)
  1. ADENURIC [Suspect]
     Indication: HYPERURICAEMIA
     Route: 048
     Dates: start: 20121016, end: 20121104

REACTIONS (5)
  - Optic neuritis [None]
  - Fatigue [None]
  - Papilloedema [None]
  - Epistaxis [None]
  - Blood pressure increased [None]
